FAERS Safety Report 10853481 (Version 1)
Quarter: 2015Q1

REPORT INFORMATION
  Report Type: Spontaneous
  Country: NL (occurrence: NL)
  Receive Date: 20150223
  Receipt Date: 20150223
  Transmission Date: 20150721
  Serious: Yes (Other)
  Sender: FDA-Public Use
  Company Number: NL-009507513-1502NLD007874

PATIENT
  Age: 62 Year
  Sex: Female

DRUGS (5)
  1. SYNAPAUSE-E3 [Suspect]
     Active Substance: ESTRADIOL
  2. LIVIAL [Suspect]
     Active Substance: TIBOLONE
     Route: 048
  3. FEMOSTON [Suspect]
     Active Substance: DYDROGESTERONE\ESTRADIOL
  4. SYNAPAUSE-E3 [Suspect]
     Active Substance: ESTRADIOL
     Dosage: UNK
     Route: 067
  5. SYNAPAUSE-E3 [Suspect]
     Active Substance: ESTRADIOL
     Indication: ABDOMINAL PAIN
     Dosage: UNK

REACTIONS (6)
  - Brain neoplasm [Unknown]
  - Vaginal discharge [Recovered/Resolved]
  - Burning sensation [Unknown]
  - Meningioma [Unknown]
  - Burning sensation [Recovered/Resolved]
  - Vaginal discharge [Unknown]

NARRATIVE: CASE EVENT DATE: 2013
